FAERS Safety Report 8762948 (Version 1)
Quarter: 2012Q4

REPORT INFORMATION
  Report Type: Spontaneous
  Country: US (occurrence: None)
  Receive Date: 20120830
  Receipt Date: 20120830
  Transmission Date: 20130627
  Serious: Yes (Other)
  Sender: FDA-Public Use
  Company Number: None

PATIENT
  Age: 28 Year
  Sex: Male
  Weight: 81.65 kg

DRUGS (1)
  1. CLARAVIS [Suspect]

REACTIONS (6)
  - Eye pain [None]
  - Eye irritation [None]
  - Migraine [None]
  - General physical health deterioration [None]
  - Quality of life decreased [None]
  - Suicidal ideation [None]
